FAERS Safety Report 5758511-2 (Version None)
Quarter: 2008Q2

REPORT INFORMATION
  Report Type: 
  Country: None (occurrence: None)
  Receive Date: 20080604
  Receipt Date: 20080527
  Transmission Date: 20081010
  Serious: Yes (Other)
  Sender: FDA-Public Use
  Company Number: A0730932A

PATIENT
  Age: 62 Year
  Sex: Male

DRUGS (10)
  1. WELLBUTRIN [Suspect]
     Dosage: 150MG UNKNOWN
     Route: 048
  2. GEODON [Suspect]
     Indication: BIPOLAR II DISORDER
     Dosage: 80MG TWICE PER DAY
     Route: 048
     Dates: start: 20041001, end: 20070101
  3. TRICOR [Concomitant]
     Indication: BLOOD CHOLESTEROL INCREASED
  4. ZETIA [Concomitant]
     Indication: BLOOD CHOLESTEROL INCREASED
     Dosage: 10MG PER DAY
  5. LIPITOR [Concomitant]
     Indication: BLOOD CHOLESTEROL INCREASED
     Dosage: 80MG PER DAY
     Route: 048
  6. ATENOLOL [Concomitant]
  7. KLONOPIN [Concomitant]
     Indication: SLEEP DISORDER
     Dosage: 25MG AT NIGHT
     Route: 048
  8. RANITIDINE [Concomitant]
     Dosage: 5MG PER DAY
  9. LOPERAMIDE HCL [Concomitant]
     Dosage: 25MG PER DAY
  10. RITALIN [Concomitant]
     Dosage: 5MG PER DAY

REACTIONS (7)
  - ANOREXIA [None]
  - DRY MOUTH [None]
  - DYSKINESIA [None]
  - MUSCLE TWITCHING [None]
  - TARDIVE DYSKINESIA [None]
  - TREMOR [None]
  - WEIGHT DECREASED [None]
